FAERS Safety Report 7304180-X (Version None)
Quarter: 2011Q1

REPORT INFORMATION
  Report Type: 
  Country: None (occurrence: None)
  Receive Date: 20110221
  Receipt Date: 20110207
  Transmission Date: 20110831
  Serious: Yes (Hospitalization, Other)
  Sender: FDA-Public Use
  Company Number: US-BAYER-201038481NA

PATIENT
  Sex: Female
  Weight: 45.805 kg

DRUGS (2)
  1. YAZ [Suspect]
     Indication: CONTRACEPTION
     Dosage: 1 DF, QD
     Route: 048
     Dates: start: 20080201, end: 20090901
  2. ADVIL [Concomitant]

REACTIONS (4)
  - CHOLELITHIASIS [None]
  - GASTRITIS [None]
  - CHOLECYSTITIS [None]
  - ABDOMINAL PAIN UPPER [None]
